FAERS Safety Report 23270464 (Version 1)
Quarter: 2023Q4

REPORT INFORMATION
  Report Type: Spontaneous
  Country: US (occurrence: US)
  Receive Date: 20231207
  Receipt Date: 20231207
  Transmission Date: 20240109
  Serious: No
  Sender: FDA-Public Use
  Company Number: US-GLAXOSMITHKLINE-USCH2023060128

PATIENT

DRUGS (1)
  1. ALLI [Suspect]
     Active Substance: ORLISTAT
     Indication: Product used for unknown indication
     Dosage: 2 DF,TOOK 2 CAPSULES OVER THE COURSE OF 2 DAYS
     Dates: start: 202311, end: 202311

REACTIONS (4)
  - Expired product administered [Unknown]
  - Faeces soft [Unknown]
  - Mucous stools [Unknown]
  - Micturition urgency [Unknown]
